FAERS Safety Report 6121459-8 (Version None)
Quarter: 2009Q1

REPORT INFORMATION
  Report Type: 
  Country: None (occurrence: None)
  Receive Date: 20090313
  Receipt Date: 20090303
  Transmission Date: 20090719
  Serious: Yes (Hospitalization)
  Sender: FDA-Public Use
  Company Number: 200915276GPV

PATIENT
  Age: 72 Year
  Sex: Male

DRUGS (7)
  1. FLUDARA [Suspect]
     Indication: CHRONIC LYMPHOCYTIC LEUKAEMIA
     Dosage: 40 MG, ORAL
     Route: 048
     Dates: start: 20090105, end: 20090202
  2. RITUXAN [Suspect]
     Indication: CHRONIC LYMPHOCYTIC LEUKAEMIA
     Dosage: 1100 MG INTRAVENOUS
     Route: 042
     Dates: start: 20090105, end: 20090202
  3. ASPIRIN [Concomitant]
  4. COTRIM [Concomitant]
  5. VALCYCLOVIR (VALACICLOVIR) [Concomitant]
  6. FLUCONAZOLE [Concomitant]
  7. ALLOPURINOL [Concomitant]

REACTIONS (1)
  - AMNESIA [None]
